FAERS Safety Report 15346246 (Version 1)
Quarter: 2018Q3

REPORT INFORMATION
  Report Type: Spontaneous
  Country: US (occurrence: US)
  Receive Date: 20180828
  Receipt Date: 20180828
  Transmission Date: 20181010
  Serious: No
  Sender: FDA-Public Use
  Company Number: None

PATIENT
  Age: 86 Year
  Sex: Male

DRUGS (2)
  1. ZYTIGA TAB 500MG [Suspect]
     Active Substance: ABIRATERONE ACETATE
  2. ALLOPURINOL. [Concomitant]
     Active Substance: ALLOPURINOL

REACTIONS (1)
  - Prostatic specific antigen increased [None]

NARRATIVE: CASE EVENT DATE: 20180823
